FAERS Safety Report 25217149 (Version 2)
Quarter: 2025Q2

REPORT INFORMATION
  Report Type: Report from Study
  Country: US (occurrence: US)
  Receive Date: 20250419
  Receipt Date: 20250519
  Transmission Date: 20250717
  Serious: No
  Sender: SANOFI AVENTIS
  Company Number: US-SANOFI-02487593

PATIENT
  Age: 43 Year
  Sex: Male

DRUGS (2)
  1. EFMOROCTOCOG ALFA [Suspect]
     Active Substance: EFMOROCTOCOG ALFA
     Indication: Factor VIII deficiency
     Route: 042
     Dates: start: 202409
  2. EFMOROCTOCOG ALFA [Suspect]
     Active Substance: EFMOROCTOCOG ALFA
     Indication: Factor VIII deficiency
     Route: 042
     Dates: start: 202409

REACTIONS (1)
  - Incorrect dose administered [Unknown]
